FAERS Safety Report 21822221 (Version 1)
Quarter: 2023Q1

REPORT INFORMATION
  Report Type: Report from Study
  Country: GB (occurrence: GB)
  Receive Date: 20230105
  Receipt Date: 20230105
  Transmission Date: 20230417
  Serious: Yes (Death)
  Sender: FDA-Public Use
  Company Number: GB-CELLTRION INC.-2022GB017780

PATIENT

DRUGS (21)
  1. BEVACIZUMAB [Suspect]
     Active Substance: BEVACIZUMAB
     Indication: Lung cancer metastatic
     Dosage: 1200 MILLIGRAM
     Dates: start: 20210210
  2. ATEZOLIZUMAB [Suspect]
     Active Substance: ATEZOLIZUMAB
     Indication: Lung cancer metastatic
     Dosage: 1200 MG, EVERY 2 WEEKS (START DATE OF MOST RECENT DOSE OF STUDY DRUG PRIOR TO AE 20/JAN/2021 DOSE LA
     Route: 042
     Dates: start: 20210210
  3. ATEZOLIZUMAB [Suspect]
     Active Substance: ATEZOLIZUMAB
     Dosage: 1200 MG
     Route: 041
     Dates: start: 20210210
  4. CARBOPLATIN [Suspect]
     Active Substance: CARBOPLATIN
     Indication: Lung cancer metastatic
     Dosage: 500 MG
     Dates: start: 20210210
  5. PACLITAXEL [Suspect]
     Active Substance: PACLITAXEL
     Indication: Lung cancer metastatic
     Dosage: 300 MG
     Dates: start: 20210210
  6. AMLODIPINE [Concomitant]
     Active Substance: AMLODIPINE BESYLATE
     Dosage: EVERY 1 DAY
     Dates: start: 20210412
  7. ATEZOLIZUMAB [Concomitant]
     Active Substance: ATEZOLIZUMAB
     Dosage: 1200 MG
  8. CANDESARTAN [Concomitant]
     Active Substance: CANDESARTAN
     Dosage: EVERY 1 DAY
     Dates: start: 20210412
  9. DEXAMETHASONE [Concomitant]
     Active Substance: DEXAMETHASONE
     Dosage: 20 MG
     Dates: start: 20210120, end: 20210120
  10. METHYLPREDNISOLONE [Concomitant]
     Active Substance: METHYLPREDNISOLONE
     Dosage: AS NECESSARY
     Dates: start: 20211201
  11. ONDANSETRON [Concomitant]
     Active Substance: ONDANSETRON
     Dosage: 8 MG
     Dates: start: 20210120, end: 20210120
  12. ONDANSETRON [Concomitant]
     Active Substance: ONDANSETRON
     Dosage: 8 MG
     Dates: start: 20210303, end: 20210303
  13. ONDANSETRON [Concomitant]
     Active Substance: ONDANSETRON
     Dosage: 8 MG
     Dates: start: 20210210, end: 20210210
  14. OSIMERTINIB [Concomitant]
     Active Substance: OSIMERTINIB
     Indication: Neoplasm malignant
  15. OSIMERTINIB [Concomitant]
     Active Substance: OSIMERTINIB
  16. RAMIPRIL [Concomitant]
     Active Substance: RAMIPRIL
     Dosage: EVERY 1 DAY
     Dates: start: 20210325, end: 20210325
  17. RANITIDINE [Concomitant]
     Active Substance: RANITIDINE
     Dosage: 20 MG
     Dates: start: 20210120, end: 20210120
  18. RANITIDINE [Concomitant]
     Active Substance: RANITIDINE
     Dosage: 50 MG
     Dates: start: 20210303, end: 20210303
  19. RANITIDINE [Concomitant]
     Active Substance: RANITIDINE
     Dosage: 50 MG
     Dates: start: 20210210, end: 20210210
  20. HYDROCORTISONE [Concomitant]
     Active Substance: HYDROCORTISONE
  21. CHLORPHENIRAMINE MALEATE [Concomitant]
     Active Substance: CHLORPHENIRAMINE MALEATE

REACTIONS (5)
  - Death [Fatal]
  - Pruritus [Recovered/Resolved]
  - Mucosal inflammation [Recovered/Resolved]
  - Fatigue [Not Recovered/Not Resolved]
  - Off label use [Unknown]

NARRATIVE: CASE EVENT DATE: 20210302
